FAERS Safety Report 10415178 (Version 2)
Quarter: 2014Q3

REPORT INFORMATION
  Report Type: Spontaneous
  Country: BR (occurrence: BR)
  Receive Date: 20140828
  Receipt Date: 20140828
  Transmission Date: 20150326
  Serious: Yes (Other)
  Sender: FDA-Public Use
  Company Number: BR-UCBSA-102350

PATIENT
  Age: 48 Year
  Sex: Female

DRUGS (10)
  1. PANTOPRAZOLE [Concomitant]
     Active Substance: PANTOPRAZOLE SODIUM
     Indication: HIATUS HERNIA
  2. LINUM USITATISSIMUM SEED OIL [Concomitant]
     Indication: MENOPAUSE
  3. PRELONE [Concomitant]
     Active Substance: PREDNISOLONE
     Indication: ARTHRITIS
  4. OMEGA-3 TRIGLYCERIDES [Concomitant]
     Indication: MENOPAUSE
  5. DHEA [Concomitant]
     Active Substance: DEHYDROEPIANDROSTERONE-3-SULFATE SODIUM
     Indication: MENOPAUSE
  6. METHOTREXATE [Concomitant]
     Active Substance: METHOTREXATE
     Indication: ARTHRITIS
  7. FOLIC ACID. [Concomitant]
     Active Substance: FOLIC ACID
     Indication: ARTHRITIS
  8. SYNTHROID [Concomitant]
     Active Substance: LEVOTHYROXINE SODIUM
     Indication: HYPOTHYROIDISM
  9. CIMZIA [Suspect]
     Active Substance: CERTOLIZUMAB PEGOL
     Dosage: 200MG/ML
     Dates: start: 20131008
  10. ERGOCALCIFEROL. [Concomitant]
     Active Substance: ERGOCALCIFEROL
     Indication: MENOPAUSE

REACTIONS (7)
  - Pain in extremity [Not Recovered/Not Resolved]
  - Throat irritation [Recovered/Resolved]
  - Viral infection [Recovered/Resolved]
  - Conjunctivitis [Recovered/Resolved]
  - Peripheral swelling [Unknown]
  - Arthralgia [Recovered/Resolved]
  - Drug dose omission [Unknown]

NARRATIVE: CASE EVENT DATE: 2013
